FAERS Safety Report 24193632 (Version 2)
Quarter: 2024Q4

REPORT INFORMATION
  Report Type: Other
  Country: CN (occurrence: CN)
  Receive Date: 20240809
  Receipt Date: 20241001
  Transmission Date: 20250115
  Serious: Yes (Other)
  Sender: QILU PHARMACEUTICAL
  Company Number: CN-QILU PHARMACEUTICAL CO.LTD.-QLU-000134-2024

PATIENT
  Age: 70 Year
  Sex: Female
  Weight: 57 kg

DRUGS (4)
  1. AMIKACIN SULFATE [Suspect]
     Active Substance: AMIKACIN SULFATE
     Indication: Brucellosis
     Dosage: 0.8 G, QD
     Route: 041
     Dates: start: 20240706, end: 20240714
  2. DOXYCYCLINE HYCLATE [Suspect]
     Active Substance: DOXYCYCLINE HYCLATE
     Indication: Brucellosis
     Dosage: 0.1 G, Q12H
     Route: 041
     Dates: start: 20240706
  3. CEFTRIAXONE [Suspect]
     Active Substance: CEFTRIAXONE
     Indication: Brucellosis
     Dosage: 2 G. Q12H
     Route: 041
     Dates: start: 20240706
  4. WuZhiJiaoNang [Concomitant]
     Dosage: 22.5 G, TID
     Route: 048
     Dates: start: 20240706

REACTIONS (2)
  - Liver injury [Recovering/Resolving]
  - Off label use [Unknown]

NARRATIVE: CASE EVENT DATE: 20240706
